FAERS Safety Report 25833250 (Version 1)
Quarter: 2025Q3

REPORT INFORMATION
  Report Type: Spontaneous
  Country: TW (occurrence: TW)
  Receive Date: 20250922
  Receipt Date: 20250922
  Transmission Date: 20251021
  Serious: Yes (Hospitalization, Other)
  Sender: TAKEDA
  Company Number: TW-TAKEDA-2025TUS082186

PATIENT
  Age: 90 Year
  Sex: Female
  Weight: 47.5 kg

DRUGS (2)
  1. LANSOPRAZOLE [Suspect]
     Active Substance: LANSOPRAZOLE
     Indication: Gastrointestinal haemorrhage
     Dosage: 30 MILLIGRAM, Q12H
     Dates: start: 20250727, end: 20250729
  2. FLOMOXEF SODIUM [Suspect]
     Active Substance: FLOMOXEF SODIUM
     Indication: Infection
     Dosage: UNK UNK, Q12H
     Dates: start: 20250722, end: 20250728

REACTIONS (4)
  - Bile duct stone [Unknown]
  - Biliary obstruction [Unknown]
  - Pulmonary embolism [Unknown]
  - Drug eruption [Recovered/Resolved]

NARRATIVE: CASE EVENT DATE: 20250728
